FAERS Safety Report 10202723 (Version 2)
Quarter: 2014Q2

REPORT INFORMATION
  Report Type: Spontaneous
  Country: BE (occurrence: BE)
  Receive Date: 20140528
  Receipt Date: 20140612
  Transmission Date: 20141212
  Serious: Yes (Other)
  Sender: FDA-Public Use
  Company Number: BE-PFIZER INC-2014144382

PATIENT
  Age: 25 Year
  Sex: Female
  Weight: 64 kg

DRUGS (3)
  1. SOMAVERT [Suspect]
     Indication: ACROMEGALY
     Dosage: 10 MG, UNK
     Route: 058
     Dates: start: 20140411
  2. SOMATULINE AUTOGEL [Concomitant]
     Dosage: 120 MG, UNK
     Route: 058
     Dates: start: 201310
  3. GABAPENTIN [Concomitant]
     Dosage: 400 MG, 3X/DAY
     Route: 048
     Dates: start: 201401

REACTIONS (1)
  - Injection site hypertrophy [Not Recovered/Not Resolved]
